FAERS Safety Report 24874270 (Version 1)
Quarter: 2025Q1

REPORT INFORMATION
  Report Type: Spontaneous
  Country: US (occurrence: US)
  Receive Date: 20250122
  Receipt Date: 20250122
  Transmission Date: 20250409
  Serious: Yes (Other)
  Sender: ORGANON
  Company Number: US-ORGANON-O2501USA001439

PATIENT
  Age: 68 Year
  Sex: Female
  Weight: 85.714 kg

DRUGS (5)
  1. DULERA [Suspect]
     Active Substance: FORMOTEROL FUMARATE DIHYDRATE\MOMETASONE FUROATE
     Indication: Chronic obstructive pulmonary disease
     Dosage: 2 PUFFS BID
     Dates: start: 20250102, end: 20250111
  2. REMERON [Concomitant]
     Active Substance: MIRTAZAPINE
  3. CLONIDINE [Concomitant]
     Active Substance: CLONIDINE
     Indication: Blood pressure increased
     Dosage: 0.05 QD
  4. CELECOXIB [Concomitant]
     Active Substance: CELECOXIB
  5. LORAZEPAM [Concomitant]
     Active Substance: LORAZEPAM

REACTIONS (4)
  - Blood pressure increased [Not Recovered/Not Resolved]
  - Insomnia [Not Recovered/Not Resolved]
  - Heart rate increased [Recovered/Resolved]
  - Feeling abnormal [Not Recovered/Not Resolved]

NARRATIVE: CASE EVENT DATE: 20250110
